FAERS Safety Report 6691743-8 (Version None)
Quarter: 2010Q2

REPORT INFORMATION
  Report Type: 
  Country: None (occurrence: None)
  Receive Date: 20100422
  Receipt Date: 20090311
  Transmission Date: 20101027
  Serious: No
  Sender: FDA-Public Use
  Company Number: US-ASTRAZENECA-2009UW06467

PATIENT
  Sex: Female
  Weight: 95.3 kg

DRUGS (6)
  1. TOPROL-XL [Suspect]
     Route: 048
     Dates: start: 20060101
  2. CYMBALTA [Concomitant]
  3. ATIVAN [Concomitant]
  4. LIPITOR [Concomitant]
  5. ZETIA [Concomitant]
  6. HYDROCHLOROTHIAZIDE [Concomitant]

REACTIONS (2)
  - PARAESTHESIA [None]
  - WEIGHT INCREASED [None]
